FAERS Safety Report 8597391-7 (Version None)
Quarter: 2012Q3

REPORT INFORMATION
  Report Type: 
  Country: None (occurrence: None)
  Receive Date: 20120801
  Receipt Date: 20120717
  Transmission Date: 20120928
  Serious: Yes (Life-Threatening, Hospitalization, Other)
  Sender: FDA-Public Use
  Company Number: DSJ-2012-12209

PATIENT
  Age: 81 Year
  Sex: Male

DRUGS (17)
  1. FEBURIC [Concomitant]
  2. OMEPRAZOLE [Concomitant]
  3. PLAVIX [Concomitant]
  4. MAGMITT (MAGNESIUM OXIDE) [Concomitant]
  5. DILTIAZEM HYDROCHLORIDE [Concomitant]
  6. DORNER (BERAPROST SODIUM) [Concomitant]
  7. LYRICA [Suspect]
     Indication: SCIATICA
     Dosage: 150 MG (75 MG,2 IN 1 D), PER ORAL
     Route: 048
     Dates: start: 20120424, end: 20120428
  8. CARVEDILOL [Concomitant]
  9. FERRUM (DEXTRIFERRON) [Concomitant]
  10. OLMESARTAN MEDOXOMIL [Suspect]
     Indication: HYPERTENSION
     Dosage: 40 MG (40 MG,1 IN 1 D), PER ORAL
     Route: 048
     Dates: end: 20120501
  11. RASILEZ (ALISKIREN) (TABLET) (ALISKIREN) [Suspect]
     Indication: HYPERTENSION
     Dosage: 150 MG (150 MG, 1 IN 1 D), PER ORAL
     Route: 048
     Dates: end: 20120501
  12. NITROL [Concomitant]
  13. EPLERENONE [Suspect]
     Indication: HYPERTENSION
     Dosage: 50 MG (50 MG,1 IN 1 D), PER ORAL
     Route: 048
     Dates: end: 20120501
  14. JUVELA (TOCOPHERYL ACETATE) [Concomitant]
  15. CLARITIN (GLICLAZIDE) [Concomitant]
  16. ISOSORBIDE DINITRATE [Concomitant]
  17. SYMBICORT [Concomitant]

REACTIONS (7)
  - HAEMODIALYSIS [None]
  - ARRHYTHMIA [None]
  - HYPERKALAEMIA [None]
  - BLOOD PRESSURE DECREASED [None]
  - HEART RATE DECREASED [None]
  - RENAL FAILURE ACUTE [None]
  - NODAL RHYTHM [None]
